FAERS Safety Report 14038987 (Version 9)
Quarter: 2018Q2

REPORT INFORMATION
  Report Type: Report from Study
  Country: FR (occurrence: FR)
  Receive Date: 20171004
  Receipt Date: 20180417
  Transmission Date: 20180711
  Serious: Yes (Hospitalization, Disabling, Other)
  Sender: FDA-Public Use
  Company Number: FR-INCYTE CORPORATION-2017IN008396

PATIENT

DRUGS (79)
  1. PROPANOLOL [Concomitant]
     Active Substance: PROPRANOLOL HYDROCHLORIDE
     Dosage: 160 MG, QD
     Route: 065
     Dates: end: 20160604
  2. JANUVIA [Concomitant]
     Active Substance: SITAGLIPTIN PHOSPHATE
     Dosage: 50 MG, BID (2 DFS IN THE MORNING )
     Route: 065
     Dates: start: 20160414, end: 201608
  3. FUROSEMIDE. [Concomitant]
     Active Substance: FUROSEMIDE
     Dosage: 500 MG, QD
     Route: 042
     Dates: start: 20170220, end: 20170228
  4. TIEMONIUM METHYLSULPHATE [Concomitant]
     Indication: OSTEOARTHRITIS
     Dosage: 1 MG/50 MG/12.5 MG, BID
     Route: 048
     Dates: start: 20160819, end: 20160825
  5. ALLOPURINOL. [Concomitant]
     Active Substance: ALLOPURINOL
     Indication: OSTEOARTHRITIS
     Dosage: DOSE CHANGED IN FUNCTION OF SYMPTOMS
     Route: 048
     Dates: start: 20160819
  6. ALDACTONE [Concomitant]
     Active Substance: SPIRONOLACTONE
     Dosage: 25 MG, QD (0.5 DF)
     Route: 048
     Dates: start: 201703, end: 20171121
  7. JAKAVI [Suspect]
     Active Substance: RUXOLITINIB
     Dosage: 5 MG, BID
     Route: 048
     Dates: start: 201611, end: 20170209
  8. JAKAVI [Suspect]
     Active Substance: RUXOLITINIB
     Dosage: 5 MG, BID
     Route: 048
     Dates: start: 20171103
  9. ARANESP [Concomitant]
     Active Substance: DARBEPOETIN ALFA
     Indication: ANAEMIA
     Dosage: 500 UG
     Route: 058
     Dates: start: 20120511, end: 20170210
  10. HEPARIN [Concomitant]
     Active Substance: HEPARIN SODIUM
     Indication: THROMBOSIS PROPHYLAXIS
     Dosage: 1.2 ML, QH
     Route: 042
     Dates: start: 20170214, end: 20170227
  11. PROPANOLOL [Concomitant]
     Active Substance: PROPRANOLOL HYDROCHLORIDE
     Dosage: 40 MG, BID
     Route: 065
     Dates: end: 201702
  12. FUROSEMIDE. [Concomitant]
     Active Substance: FUROSEMIDE
     Indication: ACUTE KIDNEY INJURY
     Dosage: 500 MG, ?  DFS IN THE MORNING AND ?  DFS AT NOON
     Route: 048
     Dates: start: 20161125
  13. AUGMENTIN [Concomitant]
     Active Substance: AMOXICILLIN\CLAVULANATE POTASSIUM
     Indication: BRONCHOPNEUMOPATHY
     Dosage: 1 G, BID
     Route: 048
     Dates: start: 20160512, end: 20160522
  14. VENTOLINE [Concomitant]
     Active Substance: ALBUTEROL
     Indication: HYPOVENTILATION
     Dosage: 100 UG, TID IF NEEDED
     Route: 065
     Dates: start: 201605
  15. ALDACTONE [Concomitant]
     Active Substance: SPIRONOLACTONE
     Indication: OEDEMA
     Dosage: 25 MG, QD
     Route: 048
     Dates: start: 201702, end: 201702
  16. BISOCE [Concomitant]
     Active Substance: BISOPROLOL
     Indication: CARDIAC FAILURE
     Dosage: 5 MG, QD
     Route: 048
     Dates: start: 201702, end: 201702
  17. HUMALOG [Concomitant]
     Active Substance: INSULIN LISPRO
     Dosage: 0.1 IU, DOSE TO ADAPT IN FUNCTION OF GLUCOSE BLOOD LEVEL
     Route: 058
     Dates: start: 201703
  18. ARANESP [Concomitant]
     Active Substance: DARBEPOETIN ALFA
     Indication: ANAEMIA PROPHYLAXIS
  19. PROPANOLOL [Concomitant]
     Active Substance: PROPRANOLOL HYDROCHLORIDE
     Dosage: 40 MG, 2 DFS IN THE MORNING AND 1 DF IN THE EVENING
     Route: 065
     Dates: start: 201702
  20. PERINDOPRIL [Concomitant]
     Active Substance: PERINDOPRIL
     Dosage: 4 MG, 1.5 DFS IN THE MORNING
     Route: 048
     Dates: start: 201604, end: 201702
  21. FUROSEMIDE. [Concomitant]
     Active Substance: FUROSEMIDE
     Dosage: 40 MG, ? DFS PER DAY
     Route: 048
     Dates: start: 201702, end: 20170307
  22. FUROSEMIDE. [Concomitant]
     Active Substance: FUROSEMIDE
     Dosage: 40 MG, 2 DFS IN THE MORNING AND 2  DFS AT NOON
     Route: 048
     Dates: start: 201703
  23. FUROSEMIDE. [Concomitant]
     Active Substance: FUROSEMIDE
     Dosage: 40 MG, 2 DFS IN THE MORNING AND 2  DFS AT NOON
     Route: 048
     Dates: start: 201703
  24. AMLODIPINE [Concomitant]
     Active Substance: AMLODIPINE BESYLATE
     Indication: HYPERTENSION
     Dosage: 5 MG, QD
     Route: 048
     Dates: start: 201603, end: 201609
  25. AMLODIPINE [Concomitant]
     Active Substance: AMLODIPINE BESYLATE
     Dosage: 10 MG, QD
     Route: 048
     Dates: start: 201609, end: 201610
  26. ESIDREX [Concomitant]
     Active Substance: HYDROCHLOROTHIAZIDE
     Indication: CARDIAC FAILURE
     Dosage: 25 MG, ? DFS PER DAY
     Route: 048
     Dates: start: 201605, end: 201610
  27. FOLIC ACID. [Concomitant]
     Active Substance: FOLIC ACID
     Indication: ANAEMIA PROPHYLAXIS
     Dosage: 5 MG, QD
     Route: 065
     Dates: start: 20170929
  28. JAKAVI [Suspect]
     Active Substance: RUXOLITINIB
     Indication: MYELOFIBROSIS
     Dosage: TAKEN AT DIFFERENT DOSE AND FREQUENCE
     Route: 048
     Dates: start: 20120302, end: 20141015
  29. JAKAVI [Suspect]
     Active Substance: RUXOLITINIB
     Dosage: 5 MG, QD
     Route: 048
     Dates: start: 20160902, end: 201611
  30. JAKAVI [Suspect]
     Active Substance: RUXOLITINIB
     Dosage: 5 MG, QD
     Route: 048
     Dates: start: 20170210, end: 201706
  31. JAKAVI [Suspect]
     Active Substance: RUXOLITINIB
     Dosage: 5 MG, QD
     Route: 065
     Dates: end: 20171102
  32. ELIQUIS [Concomitant]
     Active Substance: APIXABAN
     Indication: THROMBOSIS PROPHYLAXIS
     Dosage: 5 MG, BID
     Route: 065
     Dates: start: 20161014, end: 20170213
  33. HEPARIN [Concomitant]
     Active Substance: HEPARIN SODIUM
     Indication: ATRIAL FIBRILLATION
     Dosage: 1 ML, QH
     Route: 042
     Dates: start: 20170210, end: 20170213
  34. PERINDOPRIL [Concomitant]
     Active Substance: PERINDOPRIL
     Indication: HYPERTENSION
     Dosage: 4 MG, 11.5 DFS IN THE MORNING AND 0.5 DFS IN THE EVENING
     Route: 048
     Dates: start: 20160331, end: 201604
  35. LASILIX [Concomitant]
     Active Substance: FUROSEMIDE
     Indication: CARDIAC FAILURE
     Dosage: 40 MG, DOSE REGULARLY CHANGED IN FUNCTION OF SYMPTOMS
     Route: 048
  36. FUROSEMIDE. [Concomitant]
     Active Substance: FUROSEMIDE
     Dosage: DOSE REGULARLY CHANGED IN FUNCTION OF SYMPTOMS
     Route: 065
     Dates: start: 20170309
  37. FUROSEMIDE. [Concomitant]
     Active Substance: FUROSEMIDE
     Dosage: UNK
  38. ESOMEPRAZOLE [Concomitant]
     Active Substance: ESOMEPRAZOLE
     Indication: GASTRIC ULCER
  39. PARACETAMOL [Concomitant]
     Active Substance: ACETAMINOPHEN
     Indication: OSTEOARTHRITIS
     Dosage: 1 G, PRN (4 DFS PER DAY IF NEEDED)
     Route: 048
     Dates: start: 20160602, end: 20171109
  40. FUROSEMIDE. [Concomitant]
     Active Substance: FUROSEMIDE
     Dosage: 500 MG, 1/2   DFS IN THE MORNING AND ?  DFS AT NOON
     Route: 048
  41. UMULINE [Concomitant]
     Active Substance: INSULIN HUMAN
     Indication: DIABETES MELLITUS
     Dosage: 26 IU, DOSE OF INSULIN IN FUNCTION OF BLOOD GLUCOSE ANALYSES
     Route: 058
     Dates: start: 201609, end: 20170228
  42. NOVORAPID [Concomitant]
     Active Substance: INSULIN ASPART
     Indication: DIABETES MELLITUS
     Dosage: DOSE OF INSULIN IN FUNCTION OF BLOOD GLUCOSE ANALYSES
     Route: 058
     Dates: start: 20170301, end: 201703
  43. PROPYLEX [Concomitant]
     Active Substance: PROPYLENE GLYCOL
     Indication: HYPERTHYROIDISM
     Dosage: 50 MG, TID
     Route: 065
     Dates: start: 20160401, end: 20160406
  44. DIAMICRON [Concomitant]
     Active Substance: GLICLAZIDE
     Indication: DIABETES MELLITUS
     Dosage: 30 MG, QD
     Route: 048
     Dates: start: 201605, end: 201702
  45. PARACETAMOL [Concomitant]
     Active Substance: ACETAMINOPHEN
     Indication: BACK PAIN
  46. ALLOPURINOL. [Concomitant]
     Active Substance: ALLOPURINOL
     Indication: HYPERURICAEMIA
  47. IMOVANE [Concomitant]
     Active Substance: ZOPICLONE
     Indication: INSOMNIA
     Dosage: 3.75 MG, QD
     Route: 048
     Dates: start: 201703, end: 20170627
  48. HUMALOG [Concomitant]
     Active Substance: INSULIN LISPRO
     Indication: DIABETES MELLITUS
     Dosage: 0.1 IU, DOSE TO ADAPT IN FUNCTION OF GLUCOSE BLOOD LEVEL
     Route: 058
     Dates: start: 201703
  49. PROPANOLOL [Concomitant]
     Active Substance: PROPRANOLOL HYDROCHLORIDE
     Indication: GASTROOESOPHAGEAL VARICEAL HAEMORRHAGE PROPHYLAXIS
     Dosage: 40 MG, DOSE REGULARLY CHANGED IN FUNCTION OF SYMPTOMS
     Route: 065
     Dates: start: 20160620
  50. PROPANOLOL [Concomitant]
     Active Substance: PROPRANOLOL HYDROCHLORIDE
     Dosage: 40 MG, 2 DFS IN THE MORNING AND 2 DF IN THE EVENING
     Route: 065
     Dates: start: 20160607
  51. CRESTOR [Concomitant]
     Active Substance: ROSUVASTATIN CALCIUM
     Indication: HYPERCHOLESTEROLAEMIA
     Dosage: 10 MG, QD
     Route: 065
     Dates: start: 20151106, end: 201604
  52. PERINDOPRIL [Concomitant]
     Active Substance: PERINDOPRIL
     Indication: CARDIAC FAILURE
     Dosage: 4 MG, 1.5 DFS IN THE MORNING
     Route: 048
     Dates: start: 20151122, end: 20160330
  53. LASILIX [Concomitant]
     Active Substance: FUROSEMIDE
     Indication: ACUTE KIDNEY INJURY
  54. FUROSEMIDE. [Concomitant]
     Active Substance: FUROSEMIDE
     Dosage: 1 G, QD
     Route: 042
     Dates: start: 20170213, end: 20170219
  55. FUROSEMIDE. [Concomitant]
     Active Substance: FUROSEMIDE
     Dosage: 40 MG, ? DFS PER DAY
     Route: 048
     Dates: start: 20170308, end: 201703
  56. FUROSEMIDE. [Concomitant]
     Active Substance: FUROSEMIDE
     Dosage: 500 MG, 1/2   DFS IN THE MORNING AND ?  DFS AT NOON
     Route: 048
  57. INEXIUM [Concomitant]
     Active Substance: ESOMEPRAZOLE
     Indication: GASTRODUODENITIS
     Dosage: 20 MG, QD
     Route: 048
     Dates: start: 201603, end: 201605
  58. ESOMEPRAZOLE [Concomitant]
     Active Substance: ESOMEPRAZOLE
     Indication: GASTRODUODENITIS
     Dosage: 20 MG, QD
     Route: 048
     Dates: start: 201011, end: 201705
  59. JAKAVI [Suspect]
     Active Substance: RUXOLITINIB
     Dosage: 5 MG, BID
     Route: 048
     Dates: start: 20141016, end: 20160818
  60. PREVISCAN (FLUINDIONE) [Concomitant]
     Active Substance: FLUINDIONE
     Indication: THROMBOSIS PROPHYLAXIS
     Dosage: 20 MG, DOSE ADAPTED IN FUNCTION OF NRI
     Route: 065
     Dates: start: 200408
  61. PROPANOLOL [Concomitant]
     Active Substance: PROPRANOLOL HYDROCHLORIDE
     Dosage: 40 MG, 2 DFS IN THE MORNING AND 2 DF IN THE EVENING
     Route: 065
     Dates: start: 20160605, end: 20160606
  62. CRESTOR [Concomitant]
     Active Substance: ROSUVASTATIN CALCIUM
     Indication: DYSLIPIDAEMIA
     Dosage: 5 MG, QD
     Route: 065
     Dates: start: 201604, end: 2016
  63. PERINDOPRIL [Concomitant]
     Active Substance: PERINDOPRIL
     Dosage: 4 MG, 0.5 DFS IN THE MORNING
     Route: 048
     Dates: start: 20170223, end: 201703
  64. JANUVIA [Concomitant]
     Active Substance: SITAGLIPTIN PHOSPHATE
     Dosage: 50 MG, BID (2 DFS IN THE MORNING )
     Route: 065
     Dates: start: 20160414, end: 201608
  65. FUROSEMIDE. [Concomitant]
     Active Substance: FUROSEMIDE
     Indication: CARDIAC FAILURE
     Dosage: 500 MG, DOSE REGULARLY CHANGED IN FUNCTION OF SYMPTOMS
     Route: 048
     Dates: start: 20161125, end: 20170308
  66. EUPANTOL [Concomitant]
     Active Substance: PANTOPRAZOLE SODIUM
     Indication: GASTRODUODENITIS
     Dosage: 40 MG, QD
     Route: 048
     Dates: start: 20160602, end: 20170308
  67. HUMALOG [Concomitant]
     Active Substance: INSULIN LISPRO
     Dosage: UNK
     Dates: start: 201803
  68. IRON [Concomitant]
     Active Substance: IRON
     Indication: ANAEMIA PROPHYLAXIS
     Dosage: 2 DF, QD (80 MG)
     Route: 065
     Dates: start: 20170929
  69. PREVISCAN (FLUINDIONE) [Concomitant]
     Active Substance: FLUINDIONE
     Indication: ATRIAL FIBRILLATION
  70. PROPANOLOL [Concomitant]
     Active Substance: PROPRANOLOL HYDROCHLORIDE
     Dosage: 40 MG, 2 DFS IN THE MORNING AND 1 DF IN THE EVENING
     Route: 065
     Dates: start: 201702, end: 201702
  71. FLECAINE [Concomitant]
     Active Substance: FLECAINIDE
     Indication: ATRIAL FIBRILLATION
     Dosage: 50 MG, QD
     Route: 065
     Dates: start: 20130718, end: 20160602
  72. PERINDOPRIL [Concomitant]
     Active Substance: PERINDOPRIL
     Dosage: 4 MG, 11.5 DFS IN THE MORNING AND 0.5 DFS IN THE EVENING
     Route: 065
     Dates: start: 20160331, end: 201604
  73. JANUVIA [Concomitant]
     Active Substance: SITAGLIPTIN PHOSPHATE
     Indication: DIABETES MELLITUS
     Dosage: 50 MG, BID
     Route: 065
     Dates: start: 20140821, end: 20160413
  74. DIFFU K [Concomitant]
     Active Substance: POTASSIUM CHLORIDE
     Indication: PROPHYLAXIS
     Dosage: 600 MG, DOSE REGULARLY CHANGED IN FUNCTION OF BLOOD POTASSIUM ANALYSES
     Route: 048
     Dates: start: 201511
  75. LANTUS [Concomitant]
     Active Substance: INSULIN GLARGINE
     Indication: DIABETES MELLITUS
     Dosage: DOSE OF INSULIN IN FUNCTION OF BLOOD GLUCOSE ANALYSES
     Route: 058
     Dates: start: 201407
  76. VENTOLINE [Concomitant]
     Active Substance: ALBUTEROL
     Dosage: 100 UG, TID IF NEEDED
     Route: 065
     Dates: start: 201605
  77. KARDEGIC [Concomitant]
     Active Substance: ASPIRIN DL-LYSINE
     Indication: MYOCARDIAL ISCHAEMIA
     Dosage: 75 MG, QD
     Route: 048
     Dates: start: 201606, end: 20160818
  78. KARDEGIC [Concomitant]
     Active Substance: ASPIRIN DL-LYSINE
     Indication: THROMBOSIS
  79. AMIODARONE [Concomitant]
     Active Substance: AMIODARONE
     Indication: ATRIAL FIBRILLATION
     Dosage: 150 MG, QD
     Route: 042
     Dates: start: 20170214, end: 20170214

REACTIONS (25)
  - Erysipelas [Recovered/Resolved]
  - Colitis ischaemic [Recovered/Resolved]
  - Depression [Not Recovered/Not Resolved]
  - Hepatic encephalopathy [Recovered/Resolved]
  - Asthenia [Unknown]
  - Sepsis [Recovered/Resolved]
  - Eschar [Recovered/Resolved]
  - Atrial fibrillation [Recovered/Resolved]
  - Oesophageal ulcer [Not Recovered/Not Resolved]
  - Cognitive disorder [Recovered/Resolved]
  - Ascites [Recovered/Resolved]
  - Varicose vein [Recovered/Resolved]
  - General physical health deterioration [Not Recovered/Not Resolved]
  - Gastrointestinal haemorrhage [Recovered/Resolved]
  - Pain [Recovering/Resolving]
  - Cardiac failure [Recovered/Resolved]
  - Urinary tract infection [Recovered/Resolved]
  - Malnutrition [Recovered/Resolved]
  - Peritoneal candidiasis [Recovered/Resolved]
  - Dermo-hypodermitis [Recovered/Resolved]
  - Staphylococcal abscess [Recovered/Resolved]
  - Procedural haemorrhage [Recovered/Resolved]
  - Tachyarrhythmia [Recovered/Resolved]
  - C-reactive protein increased [Unknown]
  - Acute kidney injury [Recovered/Resolved]

NARRATIVE: CASE EVENT DATE: 20170209
